FAERS Safety Report 11687577 (Version 3)
Quarter: 2015Q4

REPORT INFORMATION
  Report Type: Report from Study
  Country: DE (occurrence: DE)
  Receive Date: 20151030
  Receipt Date: 20151209
  Transmission Date: 20160304
  Serious: Yes (Hospitalization)
  Sender: FDA-Public Use
  Company Number: DE-EISAI MEDICAL RESEARCH-EC-2015-011464

PATIENT
  Age: 58 Year
  Sex: Female
  Weight: 75.6 kg

DRUGS (5)
  1. LOPERAMID [Concomitant]
     Active Substance: LOPERAMIDE
  2. ABSTRAL [Concomitant]
     Active Substance: FENTANYL CITRATE
  3. ERIBULIN [Suspect]
     Active Substance: ERIBULIN
     Indication: BREAST CANCER METASTATIC
     Route: 041
     Dates: start: 20151118
  4. MCP TABLETTEN [Concomitant]
  5. BUSCOPAN [Concomitant]
     Active Substance: BUTYLSCOPOLAMINE BROMIDE

REACTIONS (1)
  - Helicobacter gastritis [Recovered/Resolved]

NARRATIVE: CASE EVENT DATE: 20151022
